FAERS Safety Report 5267259-2 (Version None)
Quarter: 2007Q1

REPORT INFORMATION
  Report Type: 
  Country: None (occurrence: None)
  Receive Date: 20070316
  Receipt Date: 20070312
  Transmission Date: 20070707
  Serious: Yes (Hospitalization, Disabling, Other)
  Sender: FDA-Public Use
  Company Number: US-GLAXOSMITHKLINE-A0641161A

PATIENT
  Age: 42 Year
  Sex: Female

DRUGS (5)
  1. LAMICTAL [Suspect]
     Indication: BIPOLAR DISORDER
     Dosage: 200MG PER DAY
     Route: 048
     Dates: start: 20061214, end: 20070216
  2. LITHIUM CARBONATE [Concomitant]
     Dosage: 300MG TWICE PER DAY
     Route: 048
  3. EFFEXOR XR [Concomitant]
     Indication: DEPRESSION
     Route: 048
     Dates: start: 20050307, end: 20070101
  4. TYLENOL [Concomitant]
  5. ACTONEL [Concomitant]

REACTIONS (3)
  - IMMOBILE [None]
  - MUSCULAR WEAKNESS [None]
  - PANIC ATTACK [None]
